FAERS Safety Report 14495628 (Version 2)
Quarter: 2018Q2

REPORT INFORMATION
  Report Type: Spontaneous
  Country: US (occurrence: US)
  Receive Date: 20180206
  Receipt Date: 20180504
  Transmission Date: 20180711
  Serious: No
  Sender: FDA-Public Use
  Company Number: US-TEVA-2017-US-826253

PATIENT
  Sex: Female

DRUGS (3)
  1. SORIATANE [Suspect]
     Active Substance: ACITRETIN
  2. SORIATANE [Suspect]
     Active Substance: ACITRETIN
     Indication: PSORIASIS
     Route: 048
     Dates: start: 2014, end: 201707
  3. SORIATANE [Suspect]
     Active Substance: ACITRETIN
     Route: 048
     Dates: start: 201707

REACTIONS (1)
  - Alopecia [Unknown]
